FAERS Safety Report 12527100 (Version 2)
Quarter: 2016Q3

REPORT INFORMATION
  Report Type: Spontaneous
  Country: PE (occurrence: PE)
  Receive Date: 20160705
  Receipt Date: 20160802
  Transmission Date: 20161109
  Serious: Yes (Other)
  Sender: FDA-Public Use
  Company Number: PE-SA-2016SA121330

PATIENT
  Age: 50 Year
  Sex: Female

DRUGS (1)
  1. CEREZYME [Suspect]
     Active Substance: IMIGLUCERASE
     Indication: GAUCHER^S DISEASE TYPE I
     Dosage: DOSE: 60 UI X KG
     Route: 041

REACTIONS (2)
  - Portal hypertension [Unknown]
  - Leukopenia [Unknown]

NARRATIVE: CASE EVENT DATE: 201606
